FAERS Safety Report 10071059 (Version 1)
Quarter: 2014Q2

REPORT INFORMATION
  Report Type: Spontaneous
  Country: US (occurrence: US)
  Receive Date: 20140410
  Receipt Date: 20140410
  Transmission Date: 20141212
  Serious: Yes (Other)
  Sender: FDA-Public Use
  Company Number: US-ABBVIE-14P-163-1223562-00

PATIENT
  Age: 40 Year
  Sex: Male

DRUGS (14)
  1. DEPAKOTE [Suspect]
     Indication: DEPRESSION
  2. DEPAKOTE [Suspect]
     Indication: POST-TRAUMATIC STRESS DISORDER
  3. XANAX [Suspect]
     Indication: DEPRESSION
  4. XANAX [Suspect]
     Indication: POST-TRAUMATIC STRESS DISORDER
  5. CELEBREX [Suspect]
     Indication: DEPRESSION
  6. CELEBREX [Suspect]
     Indication: POST-TRAUMATIC STRESS DISORDER
  7. WELLBUTRIN [Suspect]
     Indication: DEPRESSION
  8. WELLBUTRIN [Suspect]
     Indication: POST-TRAUMATIC STRESS DISORDER
  9. SEROQUEL [Suspect]
     Indication: DEPRESSION
  10. SEROQUEL [Suspect]
     Indication: POST-TRAUMATIC STRESS DISORDER
  11. ZOLOFT [Suspect]
     Indication: DEPRESSION
  12. ZOLOFT [Suspect]
     Indication: POST-TRAUMATIC STRESS DISORDER
  13. LITHIUM [Suspect]
     Indication: DEPRESSION
  14. LITHIUM [Suspect]
     Indication: POST-TRAUMATIC STRESS DISORDER

REACTIONS (5)
  - Homicidal ideation [Unknown]
  - Suicidal ideation [Unknown]
  - Sleep disorder [Unknown]
  - Activities of daily living impaired [Unknown]
  - Activities of daily living impaired [Unknown]
